FAERS Safety Report 15213681 (Version 1)
Quarter: 2018Q3

REPORT INFORMATION
  Report Type: Spontaneous
  Country: GB (occurrence: GB)
  Receive Date: 20180730
  Receipt Date: 20180730
  Transmission Date: 20181010
  Serious: Yes (Other)
  Sender: FDA-Public Use
  Company Number: GB-ROCHE-2159753

PATIENT
  Age: 29 Year
  Sex: Female

DRUGS (1)
  1. RITUXIMAB. [Suspect]
     Active Substance: RITUXIMAB
     Indication: ENCEPHALITIS AUTOIMMUNE
     Route: 042

REACTIONS (5)
  - Weight increased [Unknown]
  - Unevaluable event [Unknown]
  - Nausea [Unknown]
  - Skin disorder [Unknown]
  - Alopecia [Unknown]
